FAERS Safety Report 4406866-3 (Version None)
Quarter: 2004Q2

REPORT INFORMATION
  Report Type: 
  Country: None (occurrence: None)
  Receive Date: 20040618
  Receipt Date: 20040430
  Transmission Date: 20050107
  Serious: No
  Sender: FDA-Public Use
  Company Number: US-JNJFOC-20040500642

PATIENT
  Age: 34 Year
  Sex: Female
  Weight: 77.5651 kg

DRUGS (4)
  1. ORTHO EVRA [Suspect]
     Indication: CONTRACEPTION
     Dosage: 1 DOSE(S), 3 IN 4 WEEK, TRANSDERMAL
     Route: 062
     Dates: start: 20040405
  2. VITAMINS (VITAMINS) TABLETS [Concomitant]
  3. MAXIPHED (RESPAIRE-SR-120) TABLETS [Concomitant]
  4. CLARITEN (NAFTIDROFURYL) TABLETS [Concomitant]

REACTIONS (5)
  - INCREASED APPETITE [None]
  - OEDEMA PERIPHERAL [None]
  - SKIN HYPERPIGMENTATION [None]
  - SKIN HYPOPIGMENTATION [None]
  - WEIGHT INCREASED [None]
